FAERS Safety Report 19012954 (Version 1)
Quarter: 2021Q1

REPORT INFORMATION
  Report Type: Spontaneous
  Country: FR (occurrence: FR)
  Receive Date: 20210315
  Receipt Date: 20210315
  Transmission Date: 20210420
  Serious: Yes (Death, Life-Threatening)
  Sender: FDA-Public Use
  Company Number: FR-AMERICAN REGENT INC-2021000650

PATIENT
  Age: 72 Year
  Sex: Female
  Weight: 113 kg

DRUGS (1)
  1. VENOFER [Suspect]
     Active Substance: IRON SUCROSE
     Indication: IRON DEFICIENCY ANAEMIA
     Dosage: 300 MG, 1 IN 1 TOTAL
     Route: 042
     Dates: start: 20210208, end: 20210208

REACTIONS (4)
  - Cardiac dysfunction [Fatal]
  - Laryngeal dyspnoea [Fatal]
  - Bronchospasm [Fatal]
  - Multiple organ dysfunction syndrome [Fatal]

NARRATIVE: CASE EVENT DATE: 202102
